FAERS Safety Report 25007412 (Version 1)
Quarter: 2025Q1

REPORT INFORMATION
  Report Type: Spontaneous
  Country: IT (occurrence: IT)
  Receive Date: 20250225
  Receipt Date: 20250225
  Transmission Date: 20250408
  Serious: Yes (Hospitalization)
  Sender: AUROBINDO
  Company Number: IT-MINISAL02-1024154

PATIENT
  Age: 57 Year
  Sex: Male

DRUGS (10)
  1. LEVOFLOXACIN [Suspect]
     Active Substance: LEVOFLOXACIN
     Indication: Pneumonia streptococcal
     Dosage: 500 MILLIGRAM, TWO TIMES A DAY (LEVOFLOXACINA (PA) INF 10F 100ML ? 500 MG 2 VOLTE AL DIE)
     Route: 042
     Dates: start: 20250118, end: 20250118
  2. RYBELSUS [Concomitant]
     Active Substance: SEMAGLUTIDE
     Indication: Type 2 diabetes mellitus
     Route: 048
  3. AMLODIPINE BESYLATE\OLMESARTAN MEDOXOMIL [Concomitant]
     Active Substance: AMLODIPINE BESYLATE\OLMESARTAN MEDOXOMIL
     Indication: Hypertensive heart disease
     Dosage: 20MG+5MG, ONCE A DAY
     Route: 048
  4. PRELYNCA [Concomitant]
     Indication: Diabetic neuropathy
     Route: 048
  5. PANTOPRAZOLE SODIUM [Concomitant]
     Active Substance: PANTOPRAZOLE SODIUM
     Indication: Gastrooesophageal reflux disease
     Route: 048
  6. COUMADIN [Concomitant]
     Active Substance: WARFARIN SODIUM
     Indication: Aortic valve stenosis
     Route: 048
  7. COUMADIN [Concomitant]
     Active Substance: WARFARIN SODIUM
     Indication: Ischaemic heart disease prophylaxis
  8. EZETIMIBE DOC GENERICI [Concomitant]
     Indication: Dyslipidaemia
     Route: 048
  9. TAMSULOSIN [Concomitant]
     Active Substance: TAMSULOSIN
     Indication: Benign prostatic hyperplasia
     Route: 048
  10. ASPIRIN [Concomitant]
     Active Substance: ASPIRIN
     Indication: Hypertensive heart disease
     Route: 048

REACTIONS (4)
  - Hypersensitivity [Recovered/Resolved]
  - Flushing [Recovered/Resolved]
  - Oedema [Recovered/Resolved]
  - Urticaria [Recovered/Resolved]

NARRATIVE: CASE EVENT DATE: 20250118
